FAERS Safety Report 6860443-3 (Version None)
Quarter: 2010Q3

REPORT INFORMATION
  Report Type: 
  Country: None (occurrence: None)
  Receive Date: 20100720
  Receipt Date: 20100706
  Transmission Date: 20110219
  Serious: Yes (Other)
  Sender: FDA-Public Use
  Company Number: DK-ROCHE-713791

PATIENT
  Sex: Female
  Weight: 80 kg

DRUGS (1)
  1. ROACCUTAN [Suspect]
     Indication: ROSACEA
     Route: 048
     Dates: start: 19980120, end: 19980420

REACTIONS (11)
  - DRUG INTOLERANCE [None]
  - DRY SKIN [None]
  - JOINT STIFFNESS [None]
  - LACTOSE INTOLERANCE [None]
  - MYALGIA [None]
  - NIGHT BLINDNESS [None]
  - OROPHARYNGEAL DISCOMFORT [None]
  - SEASONAL ALLERGY [None]
  - TENDON PAIN [None]
  - TINNITUS [None]
  - VISUAL IMPAIRMENT [None]
